FAERS Safety Report 5923449-4 (Version None)
Quarter: 2008Q4

REPORT INFORMATION
  Report Type: 
  Country: None (occurrence: None)
  Receive Date: 20081020
  Receipt Date: 20080918
  Transmission Date: 20090506
  Serious: No
  Sender: FDA-Public Use
  Company Number: US-BAYER-200834168NA

PATIENT
  Age: 37 Year
  Sex: Female

DRUGS (2)
  1. YASMIN [Suspect]
     Indication: HORMONE LEVEL ABNORMAL
     Route: 048
     Dates: start: 20070601, end: 20071201
  2. YASMIN [Suspect]
     Route: 048
     Dates: start: 20080701, end: 20080921

REACTIONS (2)
  - METRORRHAGIA [None]
  - OFF LABEL USE [None]
